FAERS Safety Report 15747845 (Version 5)
Quarter: 2019Q4

REPORT INFORMATION
  Report Type: Report from Study
  Country: None (occurrence: FR)
  Receive Date: 20181221
  Receipt Date: 20191125
  Transmission Date: 20200122
  Serious: Yes (Hospitalization)
  Sender: FDA-Public Use
  Company Number: FR-ABBVIE-18S-056-2599116-00

PATIENT
  Age: 69 Year
  Sex: Female

DRUGS (2)
  1. DUODOPA [Suspect]
     Active Substance: CARBIDOPA\LEVODOPA
     Indication: PARKINSON^S DISEASE
     Dosage: MD: 1 ML, CFR DAY: 2 ML/H (07:00 AM - 07:00 PM), CFR NIGHT: 1.9 ML/H (07:00 PM  07:00 AM)
     Route: 050
     Dates: start: 20151127
  2. DUODOPA [Suspect]
     Active Substance: CARBIDOPA\LEVODOPA
     Dosage: DOSE DECREASED
     Route: 050

REACTIONS (7)
  - Device issue [Recovered/Resolved]
  - Dysphagia [Unknown]
  - Device dislocation [Recovered/Resolved]
  - Dyskinesia [Unknown]
  - Device issue [Unknown]
  - Lung neoplasm malignant [Not Recovered/Not Resolved]
  - Gastrooesophageal reflux disease [Unknown]
